FAERS Safety Report 6240613-8 (Version None)
Quarter: 2009Q2

REPORT INFORMATION
  Report Type: 
  Country: None (occurrence: None)
  Receive Date: 20090623
  Receipt Date: 20081105
  Transmission Date: 20091009
  Serious: No
  Sender: FDA-Public Use
  Company Number: US-ASTRAZENECA-2008UW24804

PATIENT
  Age: 63 Year
  Sex: Female
  Weight: 49.9 kg

DRUGS (5)
  1. PULMICORT FLEXHALER [Suspect]
     Indication: CHRONIC OBSTRUCTIVE PULMONARY DISEASE
     Dosage: 1-2 PUFFS OFF AND ON
     Route: 055
     Dates: start: 20081101
  2. PULMICORT FLEXHALER [Suspect]
     Dosage: 180 UG 1 PUFF OFF AND ON
     Route: 055
     Dates: start: 20081101
  3. STEROIDS [Concomitant]
  4. ANTIBIOTICS [Concomitant]
  5. UNSPECIFIED HERBS AND SUPPLEMENTS [Concomitant]

REACTIONS (2)
  - FLUSHING [None]
  - HOT FLUSH [None]
